FAERS Safety Report 9786902 (Version 3)
Quarter: 2014Q1

REPORT INFORMATION
  Report Type: Spontaneous
  Country: IT (occurrence: IT)
  Receive Date: 20131227
  Receipt Date: 20140120
  Transmission Date: 20141002
  Serious: Yes (Hospitalization, Other)
  Sender: FDA-Public Use
  Company Number: IT-ABBVIE-13P-083-1183507-00

PATIENT
  Age: 73 Year
  Sex: Male

DRUGS (2)
  1. ENANTONE [Suspect]
     Indication: PROSTATE CANCER
     Route: 058
     Dates: start: 20131011
  2. CASODEX [Suspect]
     Indication: PROSTATE CANCER
     Route: 048
     Dates: start: 20130204, end: 20131104

REACTIONS (1)
  - Cardiac failure [Recovering/Resolving]
